FAERS Safety Report 8190480-0 (Version None)
Quarter: 2012Q1

REPORT INFORMATION
  Report Type: 
  Country: None (occurrence: None)
  Receive Date: 20120221
  Receipt Date: 20111212
  Transmission Date: 20120608
  Serious: No
  Sender: FDA-Public Use
  Company Number: 1000026270

PATIENT
  Sex: Female

DRUGS (1)
  1. VIIBRYD [Suspect]
     Dates: start: 20111208, end: 20111209

REACTIONS (2)
  - DIZZINESS [None]
  - HEADACHE [None]
